FAERS Safety Report 6504863-5 (Version None)
Quarter: 2009Q4

REPORT INFORMATION
  Report Type: 
  Country: None (occurrence: None)
  Receive Date: 20091218
  Receipt Date: 20091211
  Transmission Date: 20100525
  Serious: Yes (Death)
  Sender: FDA-Public Use
  Company Number: SE-ROCHE-593366

PATIENT
  Age: 47 Year
  Sex: Male

DRUGS (3)
  1. PEGASYS [Suspect]
     Indication: DRUG USE FOR UNKNOWN INDICATION
     Dosage: FORM REPORTED AS SOL FOR INJ, DOSAGE REPORTED AS 180 RG W
     Route: 058
     Dates: start: 20080520
  2. COPEGUS [Suspect]
     Indication: DRUG USE FOR UNKNOWN INDICATION
     Dosage: FORM REPORTED AS FC TAB, DOSAGE REPORTED AS 1.2 GM D
     Route: 048
     Dates: start: 20080520
  3. SUBUTEX [Suspect]
     Indication: DRUG USE FOR UNKNOWN INDICATION
     Route: 048

REACTIONS (1)
  - CARDIOMYOPATHY [None]
